FAERS Safety Report 6723359-9 (Version None)
Quarter: 2010Q2

REPORT INFORMATION
  Report Type: 
  Country: None (occurrence: None)
  Receive Date: 20100511
  Receipt Date: 20100429
  Transmission Date: 20101027
  Serious: Yes (Other)
  Sender: FDA-Public Use
  Company Number: 230016M09SWE

PATIENT
  Sex: Female

DRUGS (1)
  1. REBIF [Suspect]
     Indication: DRUG EXPOSURE DURING PREGNANCY
     Dosage: 44 MCG, 3 IN 1 WK,
     Dates: start: 20060110

REACTIONS (2)
  - ABORTION SPONTANEOUS [None]
  - DRUG EXPOSURE DURING PREGNANCY [None]
